FAERS Safety Report 7587947-2 (Version None)
Quarter: 2011Q3

REPORT INFORMATION
  Report Type: 
  Country: None (occurrence: None)
  Receive Date: 20110705
  Receipt Date: 20110627
  Transmission Date: 20111222
  Serious: No
  Sender: FDA-Public Use
  Company Number: US-PFIZER INC-2011115529

PATIENT
  Sex: Male
  Weight: 73 kg

DRUGS (2)
  1. NEURONTIN [Suspect]
     Indication: MUSCLE SPASTICITY
     Dosage: 3600MG (600MG, 900MG, 900MG AND 1200MG)
     Route: 048
  2. CLONAZEPAM [Concomitant]
     Indication: SLEEP DISORDER
     Dosage: UNK

REACTIONS (1)
  - PRODUCT QUALITY ISSUE [None]
